FAERS Safety Report 9914109 (Version 1)
Quarter: 2014Q1

REPORT INFORMATION
  Report Type: Spontaneous
  Country: US (occurrence: None)
  Receive Date: 20140214
  Receipt Date: 20140214
  Transmission Date: 20141002
  Serious: Yes (Death)
  Sender: FDA-Public Use
  Company Number: 20140016

PATIENT
  Age: 44 Year
  Sex: Male
  Weight: 134 kg

DRUGS (1)
  1. FENTANYL [Suspect]

REACTIONS (3)
  - Hypoxic-ischaemic encephalopathy [None]
  - Toxicity to various agents [None]
  - Drug abuse [None]
